FAERS Safety Report 8816870 (Version 1)
Quarter: 2012Q4

REPORT INFORMATION
  Report Type: Spontaneous
  Country: US (occurrence: None)
  Receive Date: 20121002
  Receipt Date: 20121002
  Transmission Date: 20130627
  Serious: No
  Sender: FDA-Public Use
  Company Number: None

PATIENT
  Sex: Female

DRUGS (2)
  1. RETISERT [Suspect]
     Indication: UVEITIS
     Dosage: 0.30-0.4 micrograms daily intravitreal-046
     Dates: start: 20100728
  2. RETISERT [Suspect]
     Indication: CYSTOID MACULAR EDEMA
     Dosage: 0.30-0.4 micrograms daily intravitreal-046
     Dates: start: 20100728

REACTIONS (2)
  - Vitreous floaters [None]
  - Optic disc disorder [None]
